FAERS Safety Report 7122497-9 (Version None)
Quarter: 2010Q4

REPORT INFORMATION
  Report Type: 
  Country: None (occurrence: None)
  Receive Date: 20101124
  Receipt Date: 20101119
  Transmission Date: 20110411
  Serious: Yes (Hospitalization)
  Sender: FDA-Public Use
  Company Number: US-US-EMD SERONO, INC.-7028684

PATIENT
  Sex: Female

DRUGS (2)
  1. REBIF [Suspect]
     Indication: MULTIPLE SCLEROSIS
     Route: 058
     Dates: start: 20101018
  2. ADVIL [Concomitant]
     Indication: PREMEDICATION

REACTIONS (3)
  - MOBILITY DECREASED [None]
  - NEURITIS [None]
  - SKIN HYPERTROPHY [None]
